FAERS Safety Report 8366760-2 (Version None)
Quarter: 2012Q2

REPORT INFORMATION
  Report Type: 
  Country: None (occurrence: None)
  Receive Date: 20120517
  Receipt Date: 20120503
  Transmission Date: 20120825
  Serious: Yes (Other)
  Sender: FDA-Public Use
  Company Number: FR-AMGEN-FRASP2011063299

PATIENT
  Sex: Male
  Weight: 3.6 kg

DRUGS (5)
  1. ACETAMINOPHEN [Concomitant]
     Dosage: UNK
     Route: 064
  2. TIMOFEROL [Concomitant]
     Dosage: UNK
     Route: 064
     Dates: start: 20110701
  3. ENBREL [Suspect]
     Dosage: 50 MG, WEEKLY
     Route: 064
     Dates: start: 20040701, end: 20110705
  4. VITAMIN D [Concomitant]
     Dosage: UNK
     Route: 064
     Dates: start: 20111209
  5. CYTOTEC [Suspect]
     Indication: LABOUR INDUCTION
     Dosage: 0.25 DF, 2X/DAY
     Route: 064
     Dates: start: 20120324, end: 20120324

REACTIONS (4)
  - POSTMATURE BABY [None]
  - FOETAL HEART RATE DECELERATION [None]
  - MATERNAL EXPOSURE TIMING UNSPECIFIED [None]
  - MATERNAL DRUGS AFFECTING FOETUS [None]
